FAERS Safety Report 12760430 (Version 2)
Quarter: 2016Q4

REPORT INFORMATION
  Report Type: Spontaneous
  Country: FR (occurrence: FR)
  Receive Date: 20160919
  Receipt Date: 20161017
  Transmission Date: 20170207
  Serious: Yes (Hospitalization, Other)
  Sender: FDA-Public Use
  Company Number: FR-FRI-1000087496

PATIENT
  Age: 45 Year
  Sex: Female

DRUGS (10)
  1. BISOPROLOL [Suspect]
     Active Substance: BISOPROLOL
     Indication: PRODUCT USED FOR UNKNOWN INDICATION
     Dosage: UNK
     Route: 048
  2. IMOVANE [Suspect]
     Active Substance: ZOPICLONE
     Indication: INSOMNIA
     Dosage: UNK
     Route: 048
  3. PARIET [Suspect]
     Active Substance: RABEPRAZOLE SODIUM
     Indication: CHRONIC GASTRITIS
     Dosage: UNK
     Route: 048
  4. DOLIPRANE [Suspect]
     Active Substance: ACETAMINOPHEN
     Indication: PAIN
     Dosage: UNK
     Route: 048
  5. IXEL [Suspect]
     Active Substance: MILNACIPRAN HYDROCHLORIDE
     Indication: BIPOLAR I DISORDER
     Dosage: UNK
     Route: 048
  6. DEPAKOTE [Suspect]
     Active Substance: DIVALPROEX SODIUM
     Indication: BIPOLAR I DISORDER
     Dosage: UNK
     Route: 048
  7. STRESAM [Suspect]
     Active Substance: ETIFOXINE
     Indication: BIPOLAR I DISORDER
     Dosage: UNK
     Route: 048
  8. LEVOTHYROX [Suspect]
     Active Substance: LEVOTHYROXINE
     Indication: HYPOTHYROIDISM
     Dosage: UNK
     Route: 048
  9. BROMAZEPAM [Suspect]
     Active Substance: BROMAZEPAM
     Indication: BIPOLAR I DISORDER
     Dosage: UNK
     Route: 048
  10. HYDROXYZINE [Suspect]
     Active Substance: HYDROXYZINE\HYDROXYZINE HYDROCHLORIDE
     Indication: PRODUCT USED FOR UNKNOWN INDICATION
     Dosage: UNK
     Route: 048

REACTIONS (2)
  - Haemolytic anaemia [Not Recovered/Not Resolved]
  - Off label use [Unknown]

NARRATIVE: CASE EVENT DATE: 2012
